FAERS Safety Report 23446133 (Version 2)
Quarter: 2024Q1

REPORT INFORMATION
  Report Type: Spontaneous
  Country: AR (occurrence: AR)
  Receive Date: 20240126
  Receipt Date: 20240209
  Transmission Date: 20240409
  Serious: Yes (Other)
  Sender: FDA-Public Use
  Company Number: AR-002147023-NVSC2024AR017131

PATIENT
  Age: 82 Year
  Sex: Female

DRUGS (4)
  1. RIBOCICLIB [Suspect]
     Active Substance: RIBOCICLIB
     Indication: Product used for unknown indication
     Dosage: 3 DOSAGE FORM, QD
     Route: 065
  2. LETROZOLE [Suspect]
     Active Substance: LETROZOLE
     Indication: Product used for unknown indication
     Dosage: UNK
     Route: 065
  3. IBRANCE [Suspect]
     Active Substance: PALBOCICLIB
     Indication: Breast cancer metastatic
     Dosage: 100 MG, QD (DAILY)
     Route: 065
     Dates: start: 20220215
  4. IBRANCE [Suspect]
     Active Substance: PALBOCICLIB
     Dosage: CYCLIC (THREE WEEKS OF INTAKE AND TEN DAYS OF REST)
     Route: 065

REACTIONS (4)
  - Sjogren^s syndrome [Not Recovered/Not Resolved]
  - Decreased immune responsiveness [Not Recovered/Not Resolved]
  - Off label use [Not Recovered/Not Resolved]
  - Dysphagia [Unknown]
